FAERS Safety Report 7482830-5 (Version None)
Quarter: 2011Q2

REPORT INFORMATION
  Report Type: 
  Country: None (occurrence: None)
  Receive Date: 20110516
  Receipt Date: 20100510
  Transmission Date: 20111010
  Serious: Yes (Hospitalization)
  Sender: FDA-Public Use
  Company Number: PHHY2010DE92134

PATIENT
  Sex: Female

DRUGS (1)
  1. EXTAVIA [Suspect]
     Route: 058
     Dates: start: 20100503

REACTIONS (3)
  - NEURALGIA [None]
  - MENORRHAGIA [None]
  - MUSCLE SPASTICITY [None]
